FAERS Safety Report 23932158 (Version 1)
Quarter: 2024Q2

REPORT INFORMATION
  Report Type: Spontaneous
  Country: US (occurrence: US)
  Receive Date: 20240603
  Receipt Date: 20240603
  Transmission Date: 20240716
  Serious: Yes (Other)
  Sender: FDA-Public Use
  Company Number: US-AMGEN-USASP2024105762

PATIENT
  Age: 47 Year
  Sex: Female

DRUGS (2)
  1. TALIMOGENE LAHERPAREPVEC [Suspect]
     Active Substance: TALIMOGENE LAHERPAREPVEC
     Indication: Malignant melanoma of sites other than skin
     Dosage: 0.5 MILLILITER, 0.5 ML OF 10^6 PLAQUE-FORMING UNITS (PFUS)
     Route: 026
  2. TALIMOGENE LAHERPAREPVEC [Suspect]
     Active Substance: TALIMOGENE LAHERPAREPVEC
     Dosage: 1 MILLILITER, Q2WK, 1 ML OF 10^8 PFUS
     Route: 026

REACTIONS (1)
  - Metastatic malignant melanoma [Unknown]
